FAERS Safety Report 5790333-9 (Version None)
Quarter: 2008Q2

REPORT INFORMATION
  Report Type: 
  Country: None (occurrence: None)
  Receive Date: 20080626
  Receipt Date: 20080331
  Transmission Date: 20081010
  Serious: No
  Sender: FDA-Public Use
  Company Number: A0708922A

PATIENT
  Age: 58 Year
  Sex: Female

DRUGS (1)
  1. ALLI [Suspect]
     Dates: end: 20080301

REACTIONS (8)
  - COUGH [None]
  - GINGIVAL BLISTER [None]
  - GINGIVAL EROSION [None]
  - GINGIVAL PAIN [None]
  - INFLUENZA [None]
  - INJURY [None]
  - MALAISE [None]
  - PYREXIA [None]
